FAERS Safety Report 11874488 (Version 1)
Quarter: 2015Q4

REPORT INFORMATION
  Report Type: Spontaneous
  Country: US (occurrence: None)
  Receive Date: 20151228
  Receipt Date: 20151228
  Transmission Date: 20160305
  Serious: Yes (Other)
  Sender: FDA-Public Use
  Company Number: None

PATIENT
  Age: 25 Year
  Sex: Female
  Weight: 38.56 kg

DRUGS (11)
  1. LAMICTAL [Concomitant]
     Active Substance: LAMOTRIGINE
  2. DEPAKOTE [Concomitant]
     Active Substance: DIVALPROEX SODIUM
  3. TAGAMET [Concomitant]
     Active Substance: CIMETIDINE
  4. DIABETIC TUSSIN EXPECTORANT [Suspect]
     Active Substance: GUAIFENESIN
     Indication: RESPIRATORY TRACT CONGESTION
  5. PROGESTERONE. [Concomitant]
     Active Substance: PROGESTERONE
  6. MIRALAX [Concomitant]
     Active Substance: POLYETHYLENE GLYCOL 3350
  7. CARNITINE [Concomitant]
     Active Substance: CARNITINE
  8. DIABETIC TUSSIN EXPECTORANT [Suspect]
     Active Substance: GUAIFENESIN
     Indication: COUGH
  9. ONFI [Concomitant]
     Active Substance: CLOBAZAM
  10. PROBIOTICS [Concomitant]
     Active Substance: PROBIOTICS NOS
  11. VITAMIN D [Concomitant]
     Active Substance: CHOLECALCIFEROL

REACTIONS (1)
  - Seizure [None]

NARRATIVE: CASE EVENT DATE: 20151224
